FAERS Safety Report 13399568 (Version 1)
Quarter: 2017Q2

REPORT INFORMATION
  Report Type: Spontaneous
  Country: US (occurrence: US)
  Receive Date: 20170403
  Receipt Date: 20170403
  Transmission Date: 20170830
  Serious: Yes (Other)
  Sender: FDA-Public Use
  Company Number: None

PATIENT
  Age: 3 Year
  Sex: Female
  Weight: 11.7 kg

DRUGS (1)
  1. TAMIFLU [Suspect]
     Active Substance: OSELTAMIVIR PHOSPHATE
     Indication: INFLUENZA
     Route: 060
     Dates: start: 20170330, end: 20170330

REACTIONS (6)
  - Pyrexia [None]
  - Hallucination [None]
  - Aggression [None]
  - Anger [None]
  - Fear [None]
  - Malaise [None]

NARRATIVE: CASE EVENT DATE: 20170330
